FAERS Safety Report 5693053-4 (Version None)
Quarter: 2008Q2

REPORT INFORMATION
  Report Type: 
  Country: None (occurrence: None)
  Receive Date: 20080401
  Receipt Date: 20080401
  Transmission Date: 20081010
  Serious: Yes (Other)
  Sender: FDA-Public Use
  Company Number: None

PATIENT
  Age: 81 Year
  Sex: Female
  Weight: 61.2356 kg

DRUGS (5)
  1. RECLAST [Suspect]
     Indication: OSTEOPOROSIS
     Dosage: 5 MG ONCE IV
     Route: 042
     Dates: start: 20080328, end: 20080328
  2. PREDNISONE [Concomitant]
  3. METHOTREXATE [Concomitant]
  4. CITRACAL [Concomitant]
  5. ADVAIR HFA [Concomitant]

REACTIONS (6)
  - ARTHRALGIA [None]
  - COUGH [None]
  - JOINT SWELLING [None]
  - MUSCULOSKELETAL CHEST PAIN [None]
  - PYREXIA [None]
  - WHEEZING [None]
